FAERS Safety Report 5644379-1 (Version None)
Quarter: 2008Q1

REPORT INFORMATION
  Report Type: 
  Country: None (occurrence: None)
  Receive Date: 20080229
  Receipt Date: 20080225
  Transmission Date: 20080703
  Serious: Yes (Life-Threatening, Hospitalization)
  Sender: FDA-Public Use
  Company Number: FR-BRISTOL-MYERS SQUIBB COMPANY-14090310

PATIENT
  Age: 6 Week
  Sex: Female
  Weight: 4 kg

DRUGS (1)
  1. MUCOMYST [Suspect]
     Indication: RHINITIS
     Route: 048
     Dates: start: 20080118, end: 20080120

REACTIONS (2)
  - CONDITION AGGRAVATED [None]
  - INCREASED BRONCHIAL SECRETION [None]
